FAERS Safety Report 4979965-5 (Version None)
Quarter: 2006Q2

REPORT INFORMATION
  Report Type: 
  Country: None (occurrence: None)
  Receive Date: 20060421
  Receipt Date: 20051114
  Transmission Date: 20061013
  Serious: Yes (Hospitalization)
  Sender: FDA-Public Use
  Company Number: US-MERCK-0511USA02659

PATIENT
  Age: 47 Year
  Sex: Male
  Weight: 102 kg

DRUGS (5)
  1. VIOXX [Suspect]
     Indication: INFLAMMATION
     Route: 048
     Dates: start: 20021201, end: 20040701
  2. EFFEXOR [Concomitant]
     Route: 065
     Dates: start: 20040719
  3. [THERAPY UNSPECIFIED] [Concomitant]
     Route: 065
     Dates: start: 20040719
  4. VICODIN [Concomitant]
     Route: 065
  5. SOMA [Concomitant]
     Route: 065

REACTIONS (11)
  - ANHEDONIA [None]
  - ANXIETY [None]
  - BACK PAIN [None]
  - CARDIOVASCULAR DISORDER [None]
  - DEEP VEIN THROMBOSIS [None]
  - DEPRESSION [None]
  - INJURY [None]
  - MYOCARDIAL INFARCTION [None]
  - PULMONARY EMBOLISM [None]
  - RENAL FAILURE [None]
  - THROMBOSIS [None]
